FAERS Safety Report 5201096-X (Version None)
Quarter: 2007Q1

REPORT INFORMATION
  Report Type: 
  Country: None (occurrence: None)
  Receive Date: 20070103
  Receipt Date: 20061219
  Transmission Date: 20070707
  Serious: Yes (Hospitalization)
  Sender: FDA-Public Use
  Company Number: 234109

PATIENT
  Age: 60 Year
  Sex: Male

DRUGS (4)
  1. AVASTIN [Suspect]
     Indication: COLORECTAL CANCER METASTATIC
     Dosage: 7.5 MG/KG, Q3W, INTRAVENOUS
     Route: 042
     Dates: start: 20060818
  2. CAPECITABINE (CAPECITABINE) [Suspect]
     Indication: COLORECTAL CANCER METASTATIC
     Dosage: 2000 MG/M2, QD, ORAL
     Route: 048
     Dates: start: 20060818
  3. MITOMYCIN [Suspect]
     Indication: COLORECTAL CANCER METASTATIC
     Dosage: 7 MG/M2, Q6W, INTRAVENOUS
     Route: 042
     Dates: start: 20060818
  4. ASPIRIN [Concomitant]

REACTIONS (3)
  - DRUG EFFECT DECREASED [None]
  - LACERATION [None]
  - LOCALISED INFECTION [None]
